FAERS Safety Report 11742851 (Version 6)
Quarter: 2017Q2

REPORT INFORMATION
  Report Type: Spontaneous
  Country: US (occurrence: US)
  Receive Date: 20151116
  Receipt Date: 20170606
  Transmission Date: 20170829
  Serious: Yes (Other)
  Sender: FDA-Public Use
  Company Number: US-AMGEN-USASP2015120102

PATIENT
  Age: 65 Year
  Sex: Male
  Weight: 70.75 kg

DRUGS (11)
  1. EPOGEN [Suspect]
     Active Substance: ERYTHROPOIETIN
     Indication: CHRONIC KIDNEY DISEASE
     Dosage: 15 K, MONDAY, WEDNESDAY, AND FRIDAY (M/W/F)
     Route: 042
     Dates: start: 20150902, end: 20150911
  2. METOPROLOL TARTRATE. [Concomitant]
     Active Substance: METOPROLOL TARTRATE
     Dosage: 50 MG, BID
     Route: 048
  3. GUAIFENESIN. [Concomitant]
     Active Substance: GUAIFENESIN
     Dosage: 10 ML, AS NECESSARY (4 H), (100 MG/5ML LIDUID)
     Route: 048
  4. EPOGEN [Suspect]
     Active Substance: ERYTHROPOIETIN
     Dosage: 20 K, MONDAY, WEDNESDAY, AND FRIDAY (M/W/F)
     Route: 042
     Dates: start: 20150914, end: 20150930
  5. ALBUTEROL HFA [Concomitant]
     Active Substance: ALBUTEROL SULFATE
     Dosage: 90 MUG, AS NECESSARY, (2 PUFF INH 4 H)
  6. AMLODIPINE [Concomitant]
     Active Substance: AMLODIPINE BESYLATE
     Dosage: 0.5 MG, BID (10 MG TAB)
     Route: 048
  7. MUCINEX [Concomitant]
     Active Substance: GUAIFENESIN
     Dosage: 600 MG, AS NECESSARY, BID
     Route: 048
  8. HYDRALAZINE [Concomitant]
     Active Substance: HYDRALAZINE HYDROCHLORIDE
     Dosage: 50 MG, TID
     Route: 048
  9. RANITIDINE. [Concomitant]
     Active Substance: RANITIDINE
     Dosage: 150 MG, AS NECESSARY, DAILY
     Route: 048
  10. ASPIRIN EC [Concomitant]
     Active Substance: ASPIRIN
     Dosage: 81 MG, QD
     Route: 048
  11. EPOGEN [Suspect]
     Active Substance: ERYTHROPOIETIN
     Indication: NEPHROGENIC ANAEMIA
     Dosage: 10 K, MONDAY, WEDNESDAY, AND FRIDAY (M/W/F)
     Route: 042
     Dates: start: 20150821, end: 20150831

REACTIONS (2)
  - Aplasia pure red cell [Not Recovered/Not Resolved]
  - Anti-erythropoietin antibody positive [Unknown]

NARRATIVE: CASE EVENT DATE: 20150928
